FAERS Safety Report 9693894 (Version 1)
Quarter: 2013Q4

REPORT INFORMATION
  Report Type: Spontaneous
  Country: AU (occurrence: AU)
  Receive Date: 20131118
  Receipt Date: 20131118
  Transmission Date: 20140711
  Serious: Yes (Other)
  Sender: FDA-Public Use
  Company Number: AU-PFIZER INC-2013325427

PATIENT
  Sex: Female

DRUGS (2)
  1. LYRICA [Suspect]
     Indication: BACK DISORDER
     Dosage: 25 MG, ONE CAPSULE TWICE A DAY
     Dates: start: 20130904
  2. EFEXOR XR [Interacting]
     Dosage: 75 MG, ONE CAPSULE DAILY

REACTIONS (13)
  - Drug interaction [Unknown]
  - Off label use [Unknown]
  - Drug prescribing error [Unknown]
  - Suicidal ideation [Unknown]
  - Suicide attempt [Unknown]
  - Psychotic disorder [Unknown]
  - Alcoholism [Unknown]
  - Emotional distress [Unknown]
  - Amnesia [Unknown]
  - Arthralgia [Unknown]
  - Paraesthesia [Unknown]
  - Drug ineffective for unapproved indication [Unknown]
  - Constipation [Unknown]
